FAERS Safety Report 24088958 (Version 2)
Quarter: 2024Q3

REPORT INFORMATION
  Report Type: Spontaneous
  Country: GB (occurrence: GB)
  Receive Date: 20240715
  Receipt Date: 20240822
  Transmission Date: 20241016
  Serious: Yes (Other)
  Sender: TEVA
  Company Number: None

PATIENT
  Age: 73 Year
  Sex: Male
  Weight: 101 kg

DRUGS (3)
  1. MEMANTINE [Suspect]
     Active Substance: MEMANTINE
     Indication: Product used for unknown indication
     Route: 065
     Dates: start: 20240205
  2. FELODIPINE [Concomitant]
     Active Substance: FELODIPINE
     Indication: Product used for unknown indication
  3. ROSUVASTATIN [Concomitant]
     Active Substance: ROSUVASTATIN\ROSUVASTATIN CALCIUM
     Indication: Product used for unknown indication

REACTIONS (6)
  - Emergency care [Unknown]
  - Deep vein thrombosis [Recovering/Resolving]
  - Medication error [Unknown]
  - Malaise [Unknown]
  - Thrombosis [Unknown]
  - Product prescribing error [Unknown]

NARRATIVE: CASE EVENT DATE: 20240311
